FAERS Safety Report 5988744-1 (Version None)
Quarter: 2008Q4

REPORT INFORMATION
  Report Type: 
  Country: None (occurrence: None)
  Receive Date: 20081210
  Receipt Date: 20081203
  Transmission Date: 20090506
  Serious: Yes (Hospitalization)
  Sender: FDA-Public Use
  Company Number: PHHY2008JP30618

PATIENT
  Sex: Male

DRUGS (1)
  1. SANDOSTATIN [Suspect]
     Indication: ACROMEGALY
     Dosage: UNK
     Route: 058
     Dates: start: 20081101, end: 20081130

REACTIONS (1)
  - SICK SINUS SYNDROME [None]
